FAERS Safety Report 7531544-1 (Version None)
Quarter: 2011Q2

REPORT INFORMATION
  Report Type: 
  Country: None (occurrence: None)
  Receive Date: 20110601
  Receipt Date: 20110524
  Transmission Date: 20111010
  Serious: Yes (Death, Other)
  Sender: FDA-Public Use
  Company Number: 2005JP000048

PATIENT
  Age: 1 Year
  Sex: Female
  Weight: 9.9 kg

DRUGS (8)
  1. PROGRAF [Suspect]
     Indication: LIVER TRANSPLANT
     Dosage: MG/KG, /D, ORAL
     Route: 048
  2. 03-OKT (MUROMONAB-CD3 [Concomitant]
  3. STEROID [Concomitant]
  4. PROGRAF [Suspect]
     Indication: LIVER TRANSPLANT
     Dosage: 0.05 MG/KG /D,
     Dates: start: 20030919, end: 20031030
  5. SIMULECT [Concomitant]
  6. PROGRAF [Suspect]
     Indication: LIVER TRANSPLANT
     Dosage: MG/KG, /D, ORAL
     Route: 048
  7. CYCLOPHOSPHAMIDE [Concomitant]
  8. PROSTACYCLIN (EPOPROSTENOL) [Concomitant]

REACTIONS (11)
  - SEPTIC SHOCK [None]
  - HEPATIC STEATOSIS [None]
  - ASCITES [None]
  - DRUG INEFFECTIVE FOR UNAPPROVED INDICATION [None]
  - GASTROINTESTINAL NECROSIS [None]
  - CHOLANGITIS [None]
  - TRANSPLANT REJECTION [None]
  - COAGULOPATHY [None]
  - EPSTEIN-BARR VIRUS ASSOCIATED LYMPHOPROLIFERATIVE DISORDER [None]
  - UPPER RESPIRATORY TRACT INFLAMMATION [None]
  - HEPATIC FAILURE [None]
